FAERS Safety Report 7733921-2 (Version None)
Quarter: 2011Q3

REPORT INFORMATION
  Report Type: 
  Country: None (occurrence: None)
  Receive Date: 20110907
  Receipt Date: 20110901
  Transmission Date: 20111222
  Serious: Yes (Hospitalization)
  Sender: FDA-Public Use
  Company Number: FR-SANOFI-AVENTIS-2011SA056138

PATIENT
  Age: 45 Year
  Sex: Male

DRUGS (5)
  1. LEVOTHYROXINE SODIUM [Concomitant]
     Indication: THYROID DISORDER
     Route: 048
  2. SOLU-MEDROL [Suspect]
     Route: 040
     Dates: start: 20110510, end: 20110601
  3. TRIMETHOPRIM [Suspect]
     Route: 065
     Dates: start: 20110411
  4. LANSOPRAZOLE [Suspect]
     Route: 048
     Dates: start: 20110511, end: 20110515
  5. ZOLPIDEM [Suspect]
     Route: 048
     Dates: start: 20110511, end: 20110528

REACTIONS (2)
  - MIXED LIVER INJURY [None]
  - CYTOLYTIC HEPATITIS [None]
